FAERS Safety Report 19031894 (Version 1)
Quarter: 2021Q1

REPORT INFORMATION
  Report Type: Spontaneous
  Country: US (occurrence: US)
  Receive Date: 20210319
  Receipt Date: 20210319
  Transmission Date: 20210420
  Serious: Yes (Other)
  Sender: FDA-Public Use
  Company Number: US-SA-2021SA081765

PATIENT

DRUGS (1)
  1. ALLEGRA [Suspect]
     Active Substance: FEXOFENADINE HYDROCHLORIDE
     Dosage: UNK

REACTIONS (5)
  - Cough [Unknown]
  - Anaphylactic reaction [Unknown]
  - Swelling [Unknown]
  - Skin discolouration [Unknown]
  - Feeling abnormal [Unknown]
